FAERS Safety Report 9009171 (Version 2)
Quarter: 2013Q1

REPORT INFORMATION
  Report Type: Report from Study
  Country: US (occurrence: US)
  Receive Date: 20130111
  Receipt Date: 20130306
  Transmission Date: 20140127
  Serious: Yes (Death)
  Sender: FDA-Public Use
  Company Number: US-ROCHE-1178558

PATIENT
  Sex: Female
  Weight: 76 kg

DRUGS (1)
  1. BEVACIZUMAB [Suspect]
     Indication: PRODUCT USED FOR UNKNOWN INDICATION
     Route: 065
     Dates: start: 20090213, end: 20090513

REACTIONS (2)
  - Rhabdomyosarcoma [Fatal]
  - Metastatic neoplasm [Fatal]
